APPROVED DRUG PRODUCT: CARISOPRODOL AND ASPIRIN
Active Ingredient: ASPIRIN; CARISOPRODOL
Strength: 325MG;200MG
Dosage Form/Route: TABLET;ORAL
Application: A089594 | Product #001
Applicant: CHARTWELL RX SCIENCES LLC
Approved: Mar 31, 1989 | RLD: No | RS: No | Type: DISCN